FAERS Safety Report 7307433-4 (Version None)
Quarter: 2011Q1

REPORT INFORMATION
  Report Type: 
  Country: None (occurrence: None)
  Receive Date: 20110223
  Receipt Date: 20110221
  Transmission Date: 20110831
  Serious: Yes (Death, Hospitalization)
  Sender: FDA-Public Use
  Company Number: IT-PFIZER INC-2007018588

PATIENT
  Age: 75 Year
  Sex: Female
  Weight: 33 kg

DRUGS (5)
  1. ALDACTONE [Concomitant]
     Route: 048
     Dates: start: 20070110
  2. EUTIROX [Concomitant]
     Route: 048
     Dates: start: 20041201
  3. SUNITINIB MALATE [Suspect]
     Indication: GASTROINTESTINAL STROMAL TUMOUR
     Dosage: 25+12.5 MG DAILY, 4 WEEKS ON/2 WEEKS OFF
     Route: 048
     Dates: start: 20060804, end: 20070215
  4. LASIX [Concomitant]
     Route: 042
     Dates: start: 20070207
  5. POTASSIUM CHLORIDE [Concomitant]
     Route: 042
     Dates: start: 20070207

REACTIONS (2)
  - COMA [None]
  - PULMONARY EMBOLISM [None]
